FAERS Safety Report 5053072-8 (Version None)
Quarter: 2006Q3

REPORT INFORMATION
  Report Type: 
  Country: None (occurrence: None)
  Receive Date: 20060712
  Receipt Date: 20060628
  Transmission Date: 20061208
  Serious: Yes (Other)
  Sender: FDA-Public Use
  Company Number: 2006082317

PATIENT
  Sex: Female

DRUGS (10)
  1. LIPITOR [Suspect]
     Indication: BLOOD CHOLESTEROL
     Dosage: 20 MG
  2. LIPITOR [Suspect]
     Indication: BLOOD TRIGLYCERIDES
     Dosage: 20 MG
  3. LIPITOR [Suspect]
     Indication: HEPATIC STEATOSIS
     Dosage: 20 MG
  4. NEURONTIN [Suspect]
     Indication: FIBROMYALGIA
     Dosage: 1800 MG (600 MG, 3 IN 1 D)
  5. HYDROCODONE BITARTRATE [Suspect]
     Indication: PAIN
  6. SANDOSTATIN (OCTREOTIDE ACETATE) [Suspect]
     Indication: DIARRHOEA
  7. SPIRONOLACTONE [Concomitant]
  8. AMBIEN [Concomitant]
  9. ALL OTHER THERAPEUTIC PRODUCTS (ALL OTHER THERAPEUTIC PRODUCTS) [Concomitant]
  10. ZANAFLEX [Suspect]
     Indication: FIBROMYALGIA

REACTIONS (13)
  - ABDOMINAL DISCOMFORT [None]
  - DEHYDRATION [None]
  - DIARRHOEA [None]
  - FIBROMYALGIA [None]
  - HEPATIC STEATOSIS [None]
  - HYPOTHYROIDISM [None]
  - IRRITABLE BOWEL SYNDROME [None]
  - METABOLIC DISORDER [None]
  - NEUROPATHY [None]
  - OVERDOSE [None]
  - PAIN [None]
  - PANCREATITIS [None]
  - WEIGHT INCREASED [None]
